FAERS Safety Report 23752851 (Version 1)
Quarter: 2024Q2

REPORT INFORMATION
  Report Type: Spontaneous
  Country: UZ (occurrence: UZ)
  Receive Date: 20240417
  Receipt Date: 20240417
  Transmission Date: 20240716
  Serious: Yes (Death, Hospitalization, Other)
  Sender: FDA-Public Use
  Company Number: UZ-FreseniusKabi-FK202406140

PATIENT
  Age: 17 Month
  Sex: Female

DRUGS (3)
  1. ETOPOSIDE [Suspect]
     Active Substance: ETOPOSIDE
     Indication: Acute megakaryocytic leukaemia
     Dosage: DOSAGE: 80 MG?DAYS 6 AND 8?AML-BFM-2002 REGIMEN
     Route: 041
     Dates: start: 20230619
  2. CYTARABINE [Suspect]
     Active Substance: CYTARABINE
     Indication: Acute megakaryocytic leukaemia
     Dosage: 26 MG INTRATECALLY, DAYS 1 AND 8; 50 MG INTRAVENOUSLY DROPWISE, DAYS 1 AND 2, 48 HOURS; 50 MG TWICE
     Dates: start: 20230619
  3. IDARUBICIN [Suspect]
     Active Substance: IDARUBICIN
     Indication: Acute megakaryocytic leukaemia
     Dosage: IDARUBICIN 6 MG INTRAVENOUSLY DROPWISE 4 HOURS, DAYS 3, 5 AND 7?AML-BFM-2002 REGIMEN
     Route: 041
     Dates: start: 20230619

REACTIONS (1)
  - Agranulocytosis [Fatal]
